FAERS Safety Report 19986217 (Version 1)
Quarter: 2021Q4

REPORT INFORMATION
  Report Type: Report from Study
  Country: ZA (occurrence: ZA)
  Receive Date: 20211022
  Receipt Date: 20211022
  Transmission Date: 20220304
  Serious: Yes (Other)
  Sender: FDA-Public Use
  Company Number: 2021A776568

PATIENT
  Age: 12286 Day
  Sex: Female

DRUGS (1)
  1. BUDESONIDE\FORMOTEROL FUMARATE DIHYDRATE [Suspect]
     Active Substance: BUDESONIDE\FORMOTEROL FUMARATE DIHYDRATE
     Dosage: 120 DOSE 160/4.5 MCG, UNKNOWN UNKNOWN
     Route: 055

REACTIONS (1)
  - Lung perforation [Unknown]

NARRATIVE: CASE EVENT DATE: 20211015
